FAERS Safety Report 16971496 (Version 2)
Quarter: 2020Q1

REPORT INFORMATION
  Report Type: Report from Study
  Country: GB (occurrence: GB)
  Receive Date: 20191029
  Receipt Date: 20200324
  Transmission Date: 20200409
  Serious: Yes (Hospitalization, Other)
  Sender: FDA-Public Use
  Company Number: PHHY2019GB223954

PATIENT
  Age: 42 Year
  Sex: Male

DRUGS (1)
  1. GILENYA [Suspect]
     Active Substance: FINGOLIMOD HYDROCHLORIDE
     Indication: MULTIPLE SCLEROSIS
     Dosage: 0.5 MG, QD
     Route: 048
     Dates: start: 20190923

REACTIONS (12)
  - Dysarthria [Unknown]
  - Facial paralysis [Unknown]
  - Joint stiffness [Unknown]
  - Contusion [Unknown]
  - Arthralgia [Unknown]
  - Sinus bradycardia [Not Recovered/Not Resolved]
  - Eye pain [Unknown]
  - Electrocardiogram T wave peaked [Unknown]
  - Headache [Unknown]
  - Rectal haemorrhage [Unknown]
  - Blood pressure fluctuation [Unknown]
  - Neck pain [Unknown]

NARRATIVE: CASE EVENT DATE: 20190923
